FAERS Safety Report 8440488-2 (Version None)
Quarter: 2012Q2

REPORT INFORMATION
  Report Type: 
  Country: None (occurrence: None)
  Receive Date: 20120615
  Receipt Date: 20120608
  Transmission Date: 20120825
  Serious: Yes (Hospitalization)
  Sender: FDA-Public Use
  Company Number: FR-GLAXOSMITHKLINE-B0806691A

PATIENT
  Sex: Female

DRUGS (14)
  1. ATARAX [Concomitant]
     Route: 048
  2. VANCOMYCIN [Concomitant]
     Route: 042
  3. CEFTRIAXONE [Concomitant]
     Route: 042
  4. PAROXETINE [Concomitant]
     Route: 048
  5. BORIC ACID EYE WASHES [Concomitant]
     Route: 047
  6. PRAZEPAM [Concomitant]
     Route: 048
  7. ZOVIRAX [Suspect]
     Indication: HERPES VIRUS INFECTION
     Dosage: 500MG THREE TIMES PER DAY
     Route: 042
     Dates: start: 20120315, end: 20120322
  8. POTASSIUM CHLORIDE [Concomitant]
     Route: 048
  9. TRANSIPEG [Concomitant]
     Route: 048
  10. PIPERACILLIN/TAZOBACTAM [Suspect]
     Indication: INFECTION
     Route: 042
     Dates: start: 20120318, end: 20120322
  11. LANSOYL [Concomitant]
     Route: 048
  12. POVIDONE IODINE [Concomitant]
     Route: 047
  13. TOBREX [Concomitant]
     Route: 047
  14. VITAMINE A DULCIS [Concomitant]
     Route: 047

REACTIONS (1)
  - NEUTROPENIA [None]
